FAERS Safety Report 18229278 (Version 1)
Quarter: 2020Q3

REPORT INFORMATION
  Report Type: Spontaneous
  Country: FR (occurrence: FR)
  Receive Date: 20200903
  Receipt Date: 20200903
  Transmission Date: 20201103
  Serious: Yes (Life-Threatening)
  Sender: FDA-Public Use
  Company Number: FR-TEVA-2020-FR-1822232

PATIENT
  Age: 54 Year
  Sex: Male
  Weight: 62 kg

DRUGS (4)
  1. CARMUSTINE. [Interacting]
     Active Substance: CARMUSTINE
     Indication: BONE MARROW CONDITIONING REGIMEN
     Dosage: 550MG
     Route: 042
     Dates: start: 20200623, end: 20200623
  2. CYTARABINE. [Interacting]
     Active Substance: CYTARABINE
     Indication: BONE MARROW CONDITIONING REGIMEN
     Dosage: 715MG
     Route: 042
     Dates: start: 20200624, end: 20200627
  3. ETOPOSIDE (PHOSPHATE D^) [Suspect]
     Active Substance: ETOPOSIDE
     Indication: BONE MARROW CONDITIONING REGIMEN
     Dosage: 715MG
     Route: 042
     Dates: start: 20200624, end: 20200627
  4. MELPHALAN. [Interacting]
     Active Substance: MELPHALAN
     Indication: BONE MARROW CONDITIONING REGIMEN
     Dosage: 250.5MG
     Route: 041
     Dates: start: 20200628, end: 20200628

REACTIONS (7)
  - Mucosal inflammation [Recovering/Resolving]
  - Colitis [Recovering/Resolving]
  - Pneumonia [Recovered/Resolved]
  - Acute respiratory distress syndrome [Recovered/Resolved]
  - Febrile bone marrow aplasia [Recovering/Resolving]
  - Drug interaction [Recovering/Resolving]
  - Liver injury [Recovering/Resolving]

NARRATIVE: CASE EVENT DATE: 202006
